FAERS Safety Report 5313696-7 (Version None)
Quarter: 2007Q2

REPORT INFORMATION
  Report Type: 
  Country: None (occurrence: None)
  Receive Date: 20070501
  Receipt Date: 20070423
  Transmission Date: 20071010
  Serious: Yes (Hospitalization)
  Sender: FDA-Public Use
  Company Number: 2007CG00676

PATIENT
  Age: 72 Year
  Sex: Female

DRUGS (5)
  1. ARIMIDEX [Suspect]
     Indication: BREAST CANCER FEMALE
     Route: 048
     Dates: start: 20060420, end: 20061109
  2. ARIMIDEX [Suspect]
     Indication: BREAST CANCER
     Route: 048
     Dates: start: 20060420, end: 20061109
  3. CO-RENITEC [Suspect]
     Indication: HYPERTENSION
     Dates: end: 20061109
  4. DIHYDROERGOTAMINE MESYLATE [Suspect]
     Dates: end: 20061109
  5. RADIOTHERAPY [Suspect]
     Indication: BREAST CANCER FEMALE
     Dates: start: 20060322, end: 20060502

REACTIONS (2)
  - DEEP VEIN THROMBOSIS [None]
  - INTERSTITIAL LUNG DISEASE [None]
